FAERS Safety Report 7126249-5 (Version None)
Quarter: 2010Q4

REPORT INFORMATION
  Report Type: 
  Country: None (occurrence: None)
  Receive Date: 20101129
  Receipt Date: 20101124
  Transmission Date: 20110411
  Serious: Yes (Other)
  Sender: FDA-Public Use
  Company Number: ES-BRISTOL-MYERS SQUIBB COMPANY-15404189

PATIENT
  Age: 5 Decade
  Sex: Female

DRUGS (1)
  1. ATAZANAVIR [Suspect]
     Indication: HIV INFECTION

REACTIONS (1)
  - NEUROLOGICAL DECOMPENSATION [None]
